FAERS Safety Report 4358916-0 (Version None)
Quarter: 2004Q2

REPORT INFORMATION
  Report Type: 
  Country: None (occurrence: None)
  Receive Date: 20040517
  Receipt Date: 20040326
  Transmission Date: 20050107
  Serious: Yes (Hospitalization)
  Sender: FDA-Public Use
  Company Number: BE-BRISTOL-MYERS SQUIBB COMPANY-12543120

PATIENT
  Age: 61 Year
  Sex: Male

DRUGS (5)
  1. CETUXIMAB [Suspect]
     Indication: COLORECTAL CANCER
     Dosage: LOADING DOSE 04-APR-2003-DOSE 400MG/M2 THEN WEEKLY DOSE 250 MG/M2;MOST RECENT ON 25-MAR-04
     Route: 042
     Dates: start: 20030404
  2. ZOMETA [Suspect]
  3. COVERSYL [Concomitant]
  4. IBUPROFEN [Concomitant]
  5. PARIET [Concomitant]

REACTIONS (3)
  - HYPOCALCAEMIA [None]
  - HYPOMAGNESAEMIA [None]
  - MUSCLE CRAMP [None]
